FAERS Safety Report 7777589-8 (Version None)
Quarter: 2011Q3

REPORT INFORMATION
  Report Type: 
  Country: None (occurrence: None)
  Receive Date: 20110922
  Receipt Date: 20110901
  Transmission Date: 20111222
  Serious: Yes (Hospitalization)
  Sender: FDA-Public Use
  Company Number: JPI-P-016920

PATIENT
  Age: 67 Year
  Sex: Female

DRUGS (3)
  1. XYREM [Suspect]
     Indication: NARCOLEPSY
     Dosage: 4.5 GM (2.25 GM, 2 IN 1 D), ORAL, (UNKNOWN), ORAL, (3.75 GM FIRST DOSE/2.25 GM SECOND DOSE), ORAL
     Route: 048
     Dates: start: 20080819
  2. XYREM [Suspect]
     Indication: NARCOLEPSY
     Dosage: 4.5 GM (2.25 GM, 2 IN 1 D), ORAL, (UNKNOWN), ORAL, (3.75 GM FIRST DOSE/2.25 GM SECOND DOSE), ORAL
     Route: 048
     Dates: end: 20100830
  3. XYREM [Suspect]
     Indication: NARCOLEPSY
     Dosage: 4.5 GM (2.25 GM, 2 IN 1 D), ORAL, (UNKNOWN), ORAL, (3.75 GM FIRST DOSE/2.25 GM SECOND DOSE), ORAL
     Route: 048
     Dates: start: 20100831

REACTIONS (2)
  - CARPAL TUNNEL SYNDROME [None]
  - HIP FRACTURE [None]
